FAERS Safety Report 10140638 (Version 1)
Quarter: 2014Q2

REPORT INFORMATION
  Report Type: Spontaneous
  Country: US (occurrence: US)
  Receive Date: 20140429
  Receipt Date: 20140429
  Transmission Date: 20141212
  Serious: Yes (Other)
  Sender: FDA-Public Use
  Company Number: US-GLAXOSMITHKLINE-A1071258A

PATIENT
  Age: 23 Year
  Sex: Female

DRUGS (5)
  1. BENLYSTA [Suspect]
     Indication: SYSTEMIC LUPUS ERYTHEMATOSUS
     Route: 042
  2. YAZ [Concomitant]
  3. ADDERALL [Concomitant]
  4. TYLENOL [Concomitant]
  5. PRISTIQ [Concomitant]

REACTIONS (5)
  - Anaphylactic reaction [Recovered/Resolved]
  - Obstructive airways disorder [Recovered/Resolved]
  - Blood pressure increased [Recovered/Resolved]
  - Dyspnoea [Recovered/Resolved]
  - Feeling abnormal [Recovered/Resolved]
